FAERS Safety Report 9798765 (Version 1)
Quarter: 2014Q1

REPORT INFORMATION
  Report Type: Spontaneous
  Country: US (occurrence: US)
  Receive Date: 20140106
  Receipt Date: 20140106
  Transmission Date: 20141002
  Serious: No
  Sender: FDA-Public Use
  Company Number: US-GILEAD-2010-0030032

PATIENT
  Age: 69 Year
  Sex: Female
  Weight: 81.19 kg

DRUGS (10)
  1. LETAIRIS [Suspect]
     Indication: PULMONARY ARTERIAL HYPERTENSION
     Route: 048
     Dates: start: 20100521, end: 20100621
  2. OXYGEN [Concomitant]
  3. FUROSEMIDE [Concomitant]
  4. THEOPHYLLINE [Concomitant]
  5. AMLODIPINE BESYLATE [Concomitant]
  6. VENTOLIN HFA [Concomitant]
  7. SYMBICORT [Concomitant]
  8. NITRO [Concomitant]
  9. POTASSIUM CHLORIDE [Concomitant]
  10. ASPIRIN [Concomitant]

REACTIONS (1)
  - Local swelling [Unknown]
